FAERS Safety Report 10231373 (Version 2)
Quarter: 2014Q2

REPORT INFORMATION
  Report Type: Spontaneous
  Country: US (occurrence: US)
  Receive Date: 20140611
  Receipt Date: 20140627
  Transmission Date: 20141212
  Serious: No
  Sender: FDA-Public Use
  Company Number: US-BAYER-2014-086511

PATIENT
  Age: 67 Year
  Sex: Male
  Weight: 73 kg

DRUGS (5)
  1. ALEVE LIQUID GELS [Suspect]
     Indication: ARTHRALGIA
     Dosage: UNK, ONCE
     Route: 048
     Dates: start: 201406, end: 201406
  2. ALEVE CAPLET [Suspect]
     Indication: ARTHRALGIA
     Dosage: 1 DF, UNK
     Route: 048
     Dates: start: 201106
  3. CARDURA [Concomitant]
  4. LISINOPRIL [Concomitant]
  5. FINASTERIDE [Concomitant]

REACTIONS (4)
  - Foreign body [Recovered/Resolved]
  - Incorrect drug administration duration [None]
  - Drug ineffective [None]
  - Retching [Recovered/Resolved]
